FAERS Safety Report 5334932-7 (Version None)
Quarter: 2007Q2

REPORT INFORMATION
  Report Type: 
  Country: None (occurrence: None)
  Receive Date: 20070525
  Receipt Date: 20070524
  Transmission Date: 20071010
  Serious: Yes (Death)
  Sender: FDA-Public Use
  Company Number: US-BRISTOL-MYERS SQUIBB COMPANY-13791835

PATIENT
  Age: 68 Year
  Sex: Male

DRUGS (2)
  1. COUMADIN [Suspect]
     Indication: MYOCARDIAL INFARCTION
     Dates: start: 19800101, end: 19870101
  2. COUMADIN [Suspect]
     Indication: THROMBOSIS
     Dates: start: 19800101, end: 19870101

REACTIONS (1)
  - DEATH [None]
